FAERS Safety Report 6558619-8 (Version None)
Quarter: 2010Q1

REPORT INFORMATION
  Report Type: 
  Country: None (occurrence: None)
  Receive Date: 20100129
  Receipt Date: 20090309
  Transmission Date: 20100710
  Serious: Yes (Other)
  Sender: FDA-Public Use
  Company Number: BR-PFIZER INC-2009179683

PATIENT
  Age: 57 Year
  Sex: Male
  Weight: 82 kg

DRUGS (6)
  1. CELEBRA [Suspect]
     Indication: BRUXISM
     Dosage: 200 MG, 2X/DAY
     Route: 048
     Dates: start: 20090302, end: 20090303
  2. CELEBRA [Suspect]
     Indication: TEMPOROMANDIBULAR JOINT SYNDROME
  3. SIMVASTATIN [Concomitant]
     Dosage: UNK
     Dates: end: 20090303
  4. GINKGO BILOBA [Concomitant]
     Dosage: UNK
  5. HYPERICUM PERFORATUM [Concomitant]
     Dosage: UNK
  6. MIOFLEX (ACETAMINOPHEN/CARISOPRODOL/PHENYLBUTAZON) [Concomitant]
     Dosage: UNK
     Dates: start: 20090201

REACTIONS (1)
  - DIPLOPIA [None]
